FAERS Safety Report 11385675 (Version 2)
Quarter: 2016Q2

REPORT INFORMATION
  Report Type: Report from Study
  Country: US (occurrence: US)
  Receive Date: 20150817
  Receipt Date: 20160419
  Transmission Date: 20160815
  Serious: No
  Sender: FDA-Public Use
  Company Number: US-AMGEN-USASP2015082275

PATIENT
  Age: 72 Year
  Sex: Female

DRUGS (3)
  1. ASPRIN [Concomitant]
     Active Substance: ASPIRIN
     Indication: ATRIAL FIBRILLATION
     Dosage: UNK
  2. ENBREL [Suspect]
     Active Substance: ETANERCEPT
     Indication: RHEUMATOID ARTHRITIS
     Dosage: 50 MG, QWK
     Route: 065
     Dates: start: 201403, end: 201512
  3. NEMBUTAL SODIUM [Concomitant]
     Active Substance: PENTOBARBITAL SODIUM
     Dosage: UNK UNK, BID

REACTIONS (3)
  - Joint stiffness [Not Recovered/Not Resolved]
  - Pain [Not Recovered/Not Resolved]
  - Musculoskeletal stiffness [Not Recovered/Not Resolved]
